FAERS Safety Report 12585246 (Version 3)
Quarter: 2016Q3

REPORT INFORMATION
  Report Type: Spontaneous
  Country: IT (occurrence: IT)
  Receive Date: 20160723
  Receipt Date: 20160809
  Transmission Date: 20161109
  Serious: Yes (Other)
  Sender: FDA-Public Use
  Company Number: IT-009507513-1607ITA009259

PATIENT
  Age: 44 Year
  Sex: Male

DRUGS (3)
  1. REBETOL [Suspect]
     Active Substance: RIBAVIRIN
     Indication: CHRONIC HEPATITIS C
     Dosage: TOTAL DAILY DOSE REPORTED AS: 5 DOSE (UNIT), DAILY
     Route: 048
     Dates: start: 20160523
  2. DAKLINZA [Suspect]
     Active Substance: DACLATASVIR
     Indication: CHRONIC HEPATITIS C
     Dosage: TOTAL DAILY DOSE REPORTED AS:1 DOSE (UNIT), DAILY
     Route: 048
     Dates: start: 20160523
  3. SOVALDI [Suspect]
     Active Substance: SOFOSBUVIR
     Indication: CHRONIC HEPATITIS C
     Dosage: TOTAL DAILY DOSE REPORTED AS: 1 DOSE (UNIT),  DAILY
     Route: 048
     Dates: start: 20160523

REACTIONS (3)
  - Dysphonia [Unknown]
  - Visual acuity reduced [Unknown]
  - Asthenia [Unknown]

NARRATIVE: CASE EVENT DATE: 20160523
